FAERS Safety Report 11427486 (Version 1)
Quarter: 2015Q3

REPORT INFORMATION
  Report Type: Spontaneous
  Country: US (occurrence: US)
  Receive Date: 20150827
  Receipt Date: 20150827
  Transmission Date: 20151125
  Serious: No
  Sender: FDA-Public Use
  Company Number: US-SA-2015SA028648

PATIENT
  Age: 39 Year
  Sex: Male
  Weight: 90.7 kg

DRUGS (16)
  1. FABRAZYME [Suspect]
     Active Substance: AGALSIDASE BETA
     Indication: FABRY^S DISEASE
     Route: 041
     Dates: start: 20100119
  2. DIPHENHYDRAMINE. [Concomitant]
     Active Substance: DIPHENHYDRAMINE
  3. NORMAL SALINE [Concomitant]
     Active Substance: SODIUM CHLORIDE
  4. WATER. [Concomitant]
     Active Substance: WATER
  5. LYRICA [Concomitant]
     Active Substance: PREGABALIN
  6. PLAVIX [Concomitant]
     Active Substance: CLOPIDOGREL BISULFATE
  7. SODIUM CHLORIDE. [Concomitant]
     Active Substance: SODIUM CHLORIDE
  8. LIPITOR [Concomitant]
     Active Substance: ATORVASTATIN CALCIUM
  9. CARBAMAZEPINE. [Concomitant]
     Active Substance: CARBAMAZEPINE
  10. CELLCEPT [Concomitant]
     Active Substance: MYCOPHENOLATE MOFETIL\MYCOPHENOLATE MOFETIL HYDROCHLORIDE
  11. RAMIPRIL. [Concomitant]
     Active Substance: RAMIPRIL
  12. ASPIRIN. [Concomitant]
     Active Substance: ASPIRIN
  13. ZITHROMAX [Concomitant]
     Active Substance: AZITHROMYCIN DIHYDRATE
  14. PROGRAF [Concomitant]
     Active Substance: TACROLIMUS\TACROLIMUS ANHYDROUS
  15. COZAAR [Concomitant]
     Active Substance: LOSARTAN POTASSIUM
  16. LMX 5 [Concomitant]

REACTIONS (1)
  - Nasopharyngitis [Unknown]
